FAERS Safety Report 4406077-1 (Version None)
Quarter: 2004Q3

REPORT INFORMATION
  Report Type: 
  Country: None (occurrence: None)
  Receive Date: 20040723
  Receipt Date: 20040413
  Transmission Date: 20050211
  Serious: No
  Sender: FDA-Public Use
  Company Number: US-GLAXOSMITHKLINE-A0506914A

PATIENT
  Age: 75 Year
  Sex: Male

DRUGS (6)
  1. AVANDIA [Suspect]
     Route: 048
  2. GLYBURIDE [Concomitant]
  3. GLUCOTROL XL [Concomitant]
  4. LANOXIN [Concomitant]
  5. FUROSEMIDE [Concomitant]
  6. TOPROL-XL [Concomitant]

REACTIONS (1)
  - HYPERGLYCAEMIA [None]
